FAERS Safety Report 8119807-2 (Version None)
Quarter: 2011Q4

REPORT INFORMATION
  Report Type: 
  Country: None (occurrence: None)
  Receive Date: 20111227
  Receipt Date: 20111004
  Transmission Date: 20120403
  Serious: No
  Sender: FDA-Public Use
  Company Number: PHEH2011US05986

PATIENT
  Age: 48 Year
  Sex: Female
  Weight: 99.8 kg

DRUGS (4)
  1. LODINE [Concomitant]
  2. GILENYA [Suspect]
     Indication: RELAPSING-REMITTING MULTIPLE SCLEROSIS
     Dosage: 0.5 MG, QD, ORAL
     Route: 048
     Dates: start: 20110922
  3. XANAX [Concomitant]
  4. PROZAC [Concomitant]

REACTIONS (4)
  - AMNESIA [None]
  - JOINT STIFFNESS [None]
  - BALANCE DISORDER [None]
  - HYPOAESTHESIA [None]
